FAERS Safety Report 26165567 (Version 1)
Quarter: 2025Q4

REPORT INFORMATION
  Report Type: Spontaneous
  Country: US (occurrence: US)
  Receive Date: 20251216
  Receipt Date: 20251216
  Transmission Date: 20260118
  Serious: No
  Sender: ROCHE
  Company Number: US-ROCHE-10000454593

PATIENT
  Age: 60 Year
  Sex: Female

DRUGS (2)
  1. ALECENSA [Suspect]
     Active Substance: ALECTINIB HYDROCHLORIDE
     Indication: Retroperitoneal cancer
     Route: 048
     Dates: start: 202512
  2. ALECENSA [Suspect]
     Active Substance: ALECTINIB HYDROCHLORIDE
     Indication: Metastases to peritoneum

REACTIONS (6)
  - Hyperchlorhydria [Unknown]
  - Dyspepsia [Unknown]
  - Chapped lips [Unknown]
  - Fatigue [Unknown]
  - Muscle fatigue [Unknown]
  - Off label use [Unknown]

NARRATIVE: CASE EVENT DATE: 20251201
